FAERS Safety Report 5886254-3 (Version None)
Quarter: 2008Q3

REPORT INFORMATION
  Report Type: 
  Country: None (occurrence: None)
  Receive Date: 20080912
  Receipt Date: 20080901
  Transmission Date: 20090109
  Serious: Yes (Life-Threatening)
  Sender: FDA-Public Use
  Company Number: 002017

PATIENT
  Age: 3 Year
  Sex: Female

DRUGS (9)
  1. BUSULFEX [Suspect]
     Indication: STEM CELL TRANSPLANT
     Dosage: 7.8 ML, DAILY DOSE INTRAVENOUS; 10.4 ML, DAILY DOSE; INTRAVENOUS; 2.6 ML, DAILY DOSE; INTRAVENOUS
     Route: 042
     Dates: start: 20080101, end: 20080101
  2. BUSULFEX [Suspect]
     Indication: STEM CELL TRANSPLANT
     Dosage: 7.8 ML, DAILY DOSE INTRAVENOUS; 10.4 ML, DAILY DOSE; INTRAVENOUS; 2.6 ML, DAILY DOSE; INTRAVENOUS
     Route: 042
     Dates: start: 20080101, end: 20080101
  3. BUSULFEX [Suspect]
     Indication: STEM CELL TRANSPLANT
     Dosage: 7.8 ML, DAILY DOSE INTRAVENOUS; 10.4 ML, DAILY DOSE; INTRAVENOUS; 2.6 ML, DAILY DOSE; INTRAVENOUS
     Route: 042
     Dates: start: 20080101, end: 20080101
  4. ETOPOSIDE [Concomitant]
  5. CYCLOPHOSPHAMIDE [Concomitant]
  6. VALPROATE SODIUM [Concomitant]
  7. LENOGRASTIM [Concomitant]
  8. METHOTREXATE [Concomitant]
  9. TRACOLIMUS [Concomitant]

REACTIONS (7)
  - ACUTE GRAFT VERSUS HOST DISEASE [None]
  - ACUTE LYMPHOCYTIC LEUKAEMIA RECURRENT [None]
  - ANOREXIA [None]
  - DIARRHOEA [None]
  - FEBRILE NEUTROPENIA [None]
  - HEPATIC FUNCTION ABNORMAL [None]
  - STOMATITIS [None]
